FAERS Safety Report 7913769-6 (Version None)
Quarter: 2011Q4

REPORT INFORMATION
  Report Type: 
  Country: None (occurrence: None)
  Receive Date: 20111115
  Receipt Date: 20111110
  Transmission Date: 20120403
  Serious: Yes (Death)
  Sender: FDA-Public Use
  Company Number: PE-BRISTOL-MYERS SQUIBB COMPANY-16226433

PATIENT
  Age: 35 Year
  Sex: Male

DRUGS (1)
  1. DASATINIB [Suspect]

REACTIONS (1)
  - DEATH [None]
